FAERS Safety Report 4830105-2 (Version None)
Quarter: 2005Q4

REPORT INFORMATION
  Report Type: 
  Country: None (occurrence: None)
  Receive Date: 20051117
  Receipt Date: 20050812
  Transmission Date: 20060501
  Serious: Yes (Hospitalization)
  Sender: FDA-Public Use
  Company Number: 2005AP04424

PATIENT
  Age: 80 Year
  Sex: Female

DRUGS (3)
  1. IRESSA [Suspect]
     Indication: NON-SMALL CELL LUNG CANCER
     Route: 048
  2. IRESSA [Suspect]
     Route: 048
     Dates: start: 20050803, end: 20050810
  3. IRESSA [Suspect]
     Route: 048

REACTIONS (1)
  - PNEUMONIA [None]
